FAERS Safety Report 7887878-4 (Version None)
Quarter: 2011Q4

REPORT INFORMATION
  Report Type: 
  Country: None (occurrence: None)
  Receive Date: 20111103
  Receipt Date: 20111103
  Transmission Date: 20120403
  Serious: Yes (Hospitalization)
  Sender: FDA-Public Use
  Company Number: None

PATIENT
  Age: 80 Year
  Sex: Male
  Weight: 54.431 kg

DRUGS (2)
  1. REMERON [Suspect]
     Indication: DEPRESSION
     Dosage: 1
     Route: 048
     Dates: start: 20111012, end: 20111025
  2. REMERON [Suspect]
     Indication: DRUG THERAPY CHANGED
     Dosage: 1
     Route: 048
     Dates: start: 20111012, end: 20111025

REACTIONS (3)
  - DIPLOPIA [None]
  - HALLUCINATION [None]
  - PARANOIA [None]
